FAERS Safety Report 23670864 (Version 9)
Quarter: 2024Q4

REPORT INFORMATION
  Report Type: Report from Study
  Country: CA (occurrence: CA)
  Receive Date: 20240326
  Receipt Date: 20241226
  Transmission Date: 20250115
  Serious: Yes (Other)
  Sender: Alvotech
  Company Number: CA-JAMP PHARMA CORPORATION-2023-JAM-CA-02531

PATIENT
  Age: 69 Year
  Sex: Female

DRUGS (3)
  1. SIMLANDI [Suspect]
     Active Substance: ADALIMUMAB-RYVK
     Indication: Colitis ulcerative
     Dosage: 40 MILLIGRAM, EVERY 10 DAYS
     Route: 058
     Dates: start: 202410
  2. SIMLANDI [Suspect]
     Active Substance: ADALIMUMAB-RYVK
     Indication: Colitis ulcerative
     Dosage: 80 MILLIGRAM, EVERY 2 WEEKS
     Route: 058
     Dates: start: 202404, end: 202410
  3. SIMLANDI [Suspect]
     Active Substance: ADALIMUMAB-RYVK
     Indication: Colitis ulcerative
     Dosage: 40 MILLIGRAM, EVERY 2 WEEKS
     Route: 058
     Dates: start: 20230804

REACTIONS (24)
  - Haematochezia [Not Recovered/Not Resolved]
  - Colitis ulcerative [Unknown]
  - Faecal calprotectin increased [Not Recovered/Not Resolved]
  - Mucous stools [Unknown]
  - Eye irritation [Recovering/Resolving]
  - Eye pruritus [Recovering/Resolving]
  - Proctitis [Unknown]
  - Vulvovaginal burning sensation [Recovering/Resolving]
  - Oral pruritus [Recovering/Resolving]
  - Frequent bowel movements [Unknown]
  - Oral discomfort [Recovering/Resolving]
  - Abdominal distension [Unknown]
  - Anal pruritus [Recovering/Resolving]
  - Vulvovaginal pruritus [Recovering/Resolving]
  - Headache [Unknown]
  - Anxiety [Unknown]
  - Arthralgia [Unknown]
  - Abdominal discomfort [Unknown]
  - Anorectal discomfort [Recovering/Resolving]
  - Abdominal pain [Unknown]
  - Drug level increased [Unknown]
  - Incorrect dose administered [Unknown]
  - Off label use [Unknown]
  - Product quality issue [Unknown]

NARRATIVE: CASE EVENT DATE: 20230801
